FAERS Safety Report 8307205-8 (Version None)
Quarter: 2012Q2

REPORT INFORMATION
  Report Type: 
  Country: None (occurrence: None)
  Receive Date: 20120424
  Receipt Date: 20120320
  Transmission Date: 20120825
  Serious: Yes (Other)
  Sender: FDA-Public Use
  Company Number: SG-UCBSA-055702

PATIENT
  Age: 83 Year
  Sex: Female

DRUGS (2)
  1. MEROPENEM [Suspect]
  2. LEVETIRACETAM [Suspect]
     Dates: start: 20120201

REACTIONS (1)
  - RASH MACULO-PAPULAR [None]
